FAERS Safety Report 8862062 (Version 2)
Quarter: 2012Q4

REPORT INFORMATION
  Report Type: 
  Country: CN (occurrence: CN)
  Receive Date: 20121026
  Receipt Date: 20121109
  Transmission Date: 20130627
  Serious: Yes (Life-Threatening, Hospitalization)
  Sender: FDA-Public Use
  Company Number: CN-MILLENNIUM PHARMACEUTICALS, INC.-2012-07224

PATIENT

DRUGS (2)
  1. VELCADE [Suspect]
     Indication: MULTIPLE MYELOMA
     Dosage: 2 mg, UNK
     Route: 065
     Dates: start: 201208
  2. VELCADE [Suspect]
     Dosage: 3.5 mg, UNK
     Route: 065

REACTIONS (13)
  - Accidental overdose [Unknown]
  - Loss of consciousness [Recovering/Resolving]
  - Urinary incontinence [Recovering/Resolving]
  - Coma [Recovering/Resolving]
  - Hyperpyrexia [Recovering/Resolving]
  - Dyspnoea [Recovering/Resolving]
  - Lung infection [Recovering/Resolving]
  - Blood pressure increased [Not Recovered/Not Resolved]
  - Speech disorder [Not Recovered/Not Resolved]
  - Musculoskeletal stiffness [Not Recovered/Not Resolved]
  - Chills [Recovering/Resolving]
  - Neuropathy peripheral [Recovering/Resolving]
  - Hallucination [Recovering/Resolving]
